FAERS Safety Report 8620262-4 (Version None)
Quarter: 2012Q3

REPORT INFORMATION
  Report Type: 
  Country: None (occurrence: None)
  Receive Date: 20120817
  Receipt Date: 20120817
  Transmission Date: 20120928
  Serious: Yes (Life-Threatening, Hospitalization)
  Sender: FDA-Public Use
  Company Number: None

PATIENT
  Sex: Female
  Weight: 61.4 kg

DRUGS (1)
  1. FERAHEME [Suspect]
     Indication: IRON DEFICIENCY ANAEMIA
     Dosage: FEREHEME 510 MG, 17 ML UNDILUTED ONE DOSE, IV PUSH
     Route: 042
     Dates: start: 20120814

REACTIONS (4)
  - URINARY INCONTINENCE [None]
  - PULSE ABSENT [None]
  - APNOEA [None]
  - CHEST PAIN [None]
